FAERS Safety Report 19787953 (Version 2)
Quarter: 2021Q3

REPORT INFORMATION
  Report Type: Spontaneous
  Country: US (occurrence: US)
  Receive Date: 20210903
  Receipt Date: 20210913
  Transmission Date: 20211014
  Serious: Yes (Hospitalization)
  Sender: FDA-Public Use
  Company Number: US-PFIZER INC-202101130296

PATIENT
  Age: 29 Year
  Sex: Female

DRUGS (1)
  1. KETAMINE HCL [Suspect]
     Active Substance: KETAMINE HYDROCHLORIDE
     Dosage: UNK

REACTIONS (4)
  - Drug abuse [Unknown]
  - Biliary tract disorder [Recovering/Resolving]
  - Urinary tract disorder [Recovering/Resolving]
  - Acute kidney injury [Recovering/Resolving]
